FAERS Safety Report 6671074-2 (Version None)
Quarter: 2010Q2

REPORT INFORMATION
  Report Type: 
  Country: None (occurrence: None)
  Receive Date: 20100407
  Receipt Date: 20100331
  Transmission Date: 20101027
  Serious: Yes (Other)
  Sender: FDA-Public Use
  Company Number: JP-ASTRAZENECA-2010SE14552

PATIENT
  Age: 68 Year
  Sex: Female

DRUGS (3)
  1. AMIAS [Suspect]
     Indication: DRUG USE FOR UNKNOWN INDICATION
     Route: 048
  2. PERINDOPRIL ERBUMINE [Suspect]
     Indication: DRUG USE FOR UNKNOWN INDICATION
     Route: 065
  3. EZETROL [Suspect]
     Indication: DRUG USE FOR UNKNOWN INDICATION
     Route: 065

REACTIONS (8)
  - AGEUSIA [None]
  - ANOSMIA [None]
  - BULBAR PALSY [None]
  - CHEILITIS [None]
  - DRY EYE [None]
  - EYE PRURITUS [None]
  - GLOSSODYNIA [None]
  - LIP SWELLING [None]
